FAERS Safety Report 5708857-9 (Version None)
Quarter: 2008Q2

REPORT INFORMATION
  Report Type: 
  Country: None (occurrence: None)
  Receive Date: 20080416
  Receipt Date: 20080403
  Transmission Date: 20081010
  Serious: No
  Sender: FDA-Public Use
  Company Number: 002#2#2008-00209

PATIENT
  Age: 61 Year
  Sex: Male
  Weight: 87.9978 kg

DRUGS (6)
  1. NEUPRO [Suspect]
     Indication: PARKINSON'S DISEASE
     Dosage: 2MG/24H,1 IN 1  D,TRANSDERMAL; 4MG/24H,1 IN 1 D,TRANSDERMAL;  6MG/24H,1 IN 1 D,TRANSDERMAL
     Route: 062
     Dates: start: 20071001, end: 20071001
  2. NEUPRO [Suspect]
     Indication: PARKINSON'S DISEASE
     Dosage: 2MG/24H,1 IN 1  D,TRANSDERMAL; 4MG/24H,1 IN 1 D,TRANSDERMAL;  6MG/24H,1 IN 1 D,TRANSDERMAL
     Route: 062
     Dates: start: 20071001, end: 20071001
  3. NEUPRO [Suspect]
     Indication: PARKINSON'S DISEASE
     Dosage: 2MG/24H,1 IN 1  D,TRANSDERMAL; 4MG/24H,1 IN 1 D,TRANSDERMAL;  6MG/24H,1 IN 1 D,TRANSDERMAL
     Route: 062
     Dates: start: 20080101, end: 20080402
  4. NEUPRO [Suspect]
     Indication: PARKINSON'S DISEASE
     Dosage: 2MG/24H,1 IN 1  D,TRANSDERMAL; 4MG/24H,1 IN 1 D,TRANSDERMAL;  6MG/24H,1 IN 1 D,TRANSDERMAL
     Route: 062
     Dates: start: 20080403
  5. LOTREL [Concomitant]
  6. ASPIRIN [Concomitant]

REACTIONS (9)
  - BACK DISORDER [None]
  - BACK PAIN [None]
  - DYSPHEMIA [None]
  - FLUID RETENTION [None]
  - PHARMACEUTICAL PRODUCT COMPLAINT [None]
  - SOMNOLENCE [None]
  - SWELLING [None]
  - TREMOR [None]
  - WEIGHT INCREASED [None]
